FAERS Safety Report 24237507 (Version 1)
Quarter: 2024Q3

REPORT INFORMATION
  Report Type: Spontaneous
  Country: US (occurrence: None)
  Receive Date: 20240821
  Receipt Date: 20240821
  Transmission Date: 20241017
  Serious: Yes (Life-Threatening, Other)
  Sender: Public
  Company Number: None

PATIENT
  Age: 57 Year
  Sex: Female
  Weight: 126 kg

DRUGS (7)
  1. OZEMPIC [Suspect]
     Active Substance: SEMAGLUTIDE
     Indication: Diabetes mellitus
     Dates: start: 20240713, end: 20240817
  2. LOSARTAN [Concomitant]
  3. Netformin [Concomitant]
  4. Atorvostatin [Concomitant]
  5. ALLOPURINOL [Concomitant]
  6. METFORMIN [Concomitant]
  7. MAGNESIUM [Concomitant]

REACTIONS (3)
  - Blood pressure increased [None]
  - Blood pressure inadequately controlled [None]
  - Drug ineffective [None]

NARRATIVE: CASE EVENT DATE: 20240817
